FAERS Safety Report 7137623-5 (Version None)
Quarter: 2010Q4

REPORT INFORMATION
  Report Type: 
  Country: None (occurrence: None)
  Receive Date: 20101102
  Receipt Date: 20100225
  Transmission Date: 20110411
  Serious: Yes (Other)
  Sender: FDA-Public Use
  Company Number: 2010BH005936

PATIENT
  Sex: Female

DRUGS (1)
  1. PHENERGAN [Suspect]
     Indication: PRODUCT USED FOR UNKNOWN INDICATION
     Dosage: 50 MG; ONCE; IV
     Route: 042
     Dates: start: 20080220, end: 20080220

REACTIONS (2)
  - EXTRAVASATION [None]
  - GANGRENE [None]
